FAERS Safety Report 7183872-X (Version None)
Quarter: 2010Q4

REPORT INFORMATION
  Report Type: 
  Country: None (occurrence: None)
  Receive Date: 20101222
  Receipt Date: 20101208
  Transmission Date: 20110411
  Serious: Yes (Hospitalization, Other)
  Sender: FDA-Public Use
  Company Number: US-ROCHE-727351

PATIENT
  Sex: Male
  Weight: 79.4 kg

DRUGS (3)
  1. ACCUTANE [Suspect]
     Indication: ACNE
     Dosage: 40 MG ON ODD DAYS AND 80 MG ON EVEN DAYS
     Route: 065
     Dates: start: 20021010, end: 20030310
  2. ACCUTANE [Suspect]
     Route: 065
     Dates: start: 20030310
  3. ACCUTANE [Suspect]
     Route: 065
     Dates: start: 20030801, end: 20040501

REACTIONS (10)
  - ANAL FISSURE [None]
  - ANXIETY DISORDER [None]
  - BLOOD TRIGLYCERIDES INCREASED [None]
  - COLITIS [None]
  - CROHN'S DISEASE [None]
  - GASTROINTESTINAL INJURY [None]
  - ILEUS [None]
  - INFLAMMATORY BOWEL DISEASE [None]
  - IRRITABLE BOWEL SYNDROME [None]
  - PANIC ATTACK [None]
